FAERS Safety Report 4311302-1 (Version None)
Quarter: 2004Q1

REPORT INFORMATION
  Report Type: 
  Country: None (occurrence: None)
  Receive Date: 20040304
  Receipt Date: 20040223
  Transmission Date: 20041129
  Serious: Yes (Hospitalization)
  Sender: FDA-Public Use
  Company Number: FR-GLAXOSMITHKLINE-B0324613A

PATIENT
  Age: 71 Year
  Sex: Male

DRUGS (12)
  1. DEROXAT [Suspect]
     Dosage: 20MG PER DAY
     Route: 048
  2. PREVISCAN [Suspect]
     Dosage: 25MG PER DAY
     Route: 048
     Dates: start: 20040123, end: 20040131
  3. LOVENOX [Suspect]
     Route: 058
     Dates: start: 20040122, end: 20040131
  4. SOLUPRED [Suspect]
     Dosage: 30MG PER DAY
     Route: 048
     Dates: end: 20040131
  5. LASILIX [Suspect]
     Indication: HYPERTENSION
     Dosage: 1UNIT PER DAY
     Route: 048
  6. TRIATEC [Suspect]
     Indication: HYPERTENSION
     Dosage: 5MG PER DAY
     Route: 048
  7. SERETIDE DISKUS [Concomitant]
     Route: 055
  8. TOPALGIC ( FRANCE ) [Concomitant]
     Route: 065
  9. ELISOR [Concomitant]
     Dosage: 40MG UNKNOWN
     Route: 048
  10. MELLERIL [Concomitant]
     Route: 048
  11. VECTARION [Concomitant]
     Route: 065
  12. CORDARONE [Concomitant]
     Route: 065

REACTIONS (11)
  - ABDOMINAL PAIN LOWER [None]
  - ANAEMIA [None]
  - ARRHYTHMIA [None]
  - DRUG INTERACTION [None]
  - HAEMATOMA [None]
  - HAEMATURIA [None]
  - INJECTION SITE HAEMORRHAGE [None]
  - PAIN [None]
  - PROTHROMBIN TIME PROLONGED [None]
  - RESPIRATORY FAILURE [None]
  - SUPRAPUBIC PAIN [None]
